FAERS Safety Report 5410765-8 (Version None)
Quarter: 2007Q3

REPORT INFORMATION
  Report Type: 
  Country: None (occurrence: None)
  Receive Date: 20070810
  Receipt Date: 20070326
  Transmission Date: 20080115
  Serious: No
  Sender: FDA-Public Use
  Company Number: A0644620A

PATIENT
  Age: 52 Year
  Sex: Male

DRUGS (2)
  1. PAXIL CR [Suspect]
     Indication: DEPRESSION
     Dosage: 1TAB PER DAY
     Route: 048
     Dates: start: 20060701
  2. LIPITOR [Concomitant]

REACTIONS (3)
  - DRUG ADMINISTRATION ERROR [None]
  - EJACULATION DELAYED [None]
  - ERECTILE DYSFUNCTION [None]
